FAERS Safety Report 8585688 (Version 2)
Quarter: 2012Q4

REPORT INFORMATION
  Report Type: 
  Country: CH (occurrence: CH)
  Receive Date: 20120530
  Receipt Date: 20121023
  Transmission Date: 20130627
  Serious: Yes (Hospitalization)
  Sender: FDA-Public Use
  Company Number: CH-ELI_LILLY_AND_COMPANY-CH201205005886

PATIENT
  Age: 76 Year
  Sex: Male

DRUGS (6)
  1. ZYPREXA [Suspect]
     Indication: HALLUCINATION, VISUAL
     Dosage: 1.25 mg, qd
     Route: 048
     Dates: start: 20120215, end: 20120221
  2. ZYPREXA [Suspect]
     Dosage: 2.5 mg, qd
     Route: 048
     Dates: start: 20120222, end: 20120226
  3. BELOC ZOK [Concomitant]
     Dosage: 50 mg, qd
     Route: 048
     Dates: start: 2008
  4. TORASEMID [Concomitant]
     Dosage: 5 mg, qd
     Route: 048
     Dates: start: 2009
  5. MARCOUMAR [Concomitant]
     Dosage: UNK
     Dates: start: 2007
  6. APROVEL [Concomitant]
     Indication: HYPERTENSION
     Dosage: 150 mg, qd
     Route: 048
     Dates: start: 2009

REACTIONS (5)
  - Delirium [Recovered/Resolved]
  - Restlessness [Recovered/Resolved]
  - Hallucination [Recovered/Resolved]
  - Aggression [Recovered/Resolved]
  - Positron emission tomogram abnormal [Unknown]
